FAERS Safety Report 4988519-6 (Version None)
Quarter: 2006Q2

REPORT INFORMATION
  Report Type: 
  Country: None (occurrence: None)
  Receive Date: 20060426
  Receipt Date: 20060330
  Transmission Date: 20061013
  Serious: Yes (Other)
  Sender: FDA-Public Use
  Company Number: ENTC2006-0059

PATIENT
  Age: 69 Year
  Sex: Male

DRUGS (1)
  1. STALEVO 100 [Suspect]
     Indication: PARKINSON'S DISEASE
     Dosage: 500 MG ORAL
     Route: 048
     Dates: start: 20050914, end: 20060215

REACTIONS (3)
  - BILE DUCT OBSTRUCTION [None]
  - PANCREATIC CARCINOMA [None]
  - YELLOW SKIN [None]
